FAERS Safety Report 4740421-0 (Version None)
Quarter: 2005Q3

REPORT INFORMATION
  Report Type: 
  Country: None (occurrence: None)
  Receive Date: 20050805
  Receipt Date: 20050725
  Transmission Date: 20060218
  Serious: Yes (Hospitalization)
  Sender: FDA-Public Use
  Company Number: A044-002-005686

PATIENT
  Age: 69 Year
  Sex: Female
  Weight: 60 kg

DRUGS (4)
  1. ARICEPT [Suspect]
     Dosage: 10 MG, 1 IN 1 D, ORAL
     Route: 048
     Dates: start: 20050101, end: 20050430
  2. FOSAMAX [Suspect]
     Dosage: 70 MG, 1 IN 1 D, ORAL
     Route: 048
     Dates: start: 20040101
  3. TEGRETOL [Suspect]
     Dosage: 800 MG, 1 IN 1 D, ORAL
     Route: 048
     Dates: start: 19750101
  4. ICAZ (ISRADIPINE) [Suspect]
     Dosage: 5 MG, 1 IN 1 D, ORAL
     Route: 048
     Dates: start: 20040101

REACTIONS (2)
  - LICHENOID KERATOSIS [None]
  - TOXIC SKIN ERUPTION [None]
